FAERS Safety Report 13249700 (Version 1)
Quarter: 2017Q1

REPORT INFORMATION
  Report Type: Spontaneous
  Country: US (occurrence: US)
  Receive Date: 20170218
  Receipt Date: 20170218
  Transmission Date: 20170428
  Serious: No
  Sender: FDA-Public Use
  Company Number: US-ALLERGAN-1672204US

PATIENT
  Sex: Female

DRUGS (4)
  1. REFRESH OPTIVE PRESERVATIVE FREE [Concomitant]
     Indication: EYE INFLAMMATION
     Dosage: UNK UNK, QHS
     Route: 047
  2. RESTASIS [Suspect]
     Active Substance: CYCLOSPORINE
     Indication: DRY EYE
     Dosage: 2 GTT, BID
     Route: 047
     Dates: start: 20161011, end: 20161012
  3. PRED FORTE [Concomitant]
     Active Substance: PREDNISOLONE ACETATE
     Indication: KERATITIS
  4. PRED FORTE [Concomitant]
     Active Substance: PREDNISOLONE ACETATE
     Indication: EYE IRRITATION
     Dosage: UNK UNK, QHS
     Route: 047

REACTIONS (4)
  - Lacrimation increased [Not Recovered/Not Resolved]
  - Keratitis [Not Recovered/Not Resolved]
  - Visual acuity reduced [Not Recovered/Not Resolved]
  - Eye irritation [Not Recovered/Not Resolved]

NARRATIVE: CASE EVENT DATE: 20161011
